FAERS Safety Report 7844602-9 (Version None)
Quarter: 2011Q4

REPORT INFORMATION
  Report Type: 
  Country: None (occurrence: None)
  Receive Date: 20111025
  Receipt Date: 20111018
  Transmission Date: 20120403
  Serious: Yes (Hospitalization)
  Sender: FDA-Public Use
  Company Number: DE-CEPHALON-2011005230

PATIENT
  Sex: Male

DRUGS (6)
  1. BENDAMUSTINE HCL [Suspect]
     Indication: NON-HODGKIN'S LYMPHOMA
     Route: 042
     Dates: start: 20110830, end: 20111005
  2. RAMIPRIL [Concomitant]
  3. TEMSIROLIMUS [Suspect]
     Indication: NON-HODGKIN'S LYMPHOMA
     Dates: start: 20110831, end: 20111005
  4. RITUXIMAB [Suspect]
     Indication: NON-HODGKIN'S LYMPHOMA
     Route: 042
     Dates: start: 20110829, end: 20111005
  5. BISOPROLOL [Concomitant]
  6. PREDNISONE [Concomitant]
     Dates: start: 20090601

REACTIONS (1)
  - PNEUMONIA PRIMARY ATYPICAL [None]
